FAERS Safety Report 15268528 (Version 1)
Quarter: 2018Q3

REPORT INFORMATION
  Report Type: Spontaneous
  Country: US (occurrence: US)
  Receive Date: 20180726
  Receipt Date: 20180726
  Transmission Date: 20181010
  Serious: No
  Sender: FDA-Public Use
  Company Number: None

PATIENT
  Age: 68 Year
  Sex: Male

DRUGS (1)
  1. IMATINIB MESYLATE. [Suspect]
     Active Substance: IMATINIB MESYLATE
     Indication: PREGNANCY
     Route: 048
     Dates: start: 20160128

REACTIONS (2)
  - Gastrointestinal carcinoma [None]
  - Renal mass [None]

NARRATIVE: CASE EVENT DATE: 20180725
